FAERS Safety Report 7778281-6 (Version None)
Quarter: 2011Q3

REPORT INFORMATION
  Report Type: 
  Country: None (occurrence: None)
  Receive Date: 20110926
  Receipt Date: 20110917
  Transmission Date: 20111222
  Serious: Yes (Hospitalization, Other)
  Sender: FDA-Public Use
  Company Number: PHHO2008PL08926

PATIENT
  Sex: Female
  Weight: 55.5 kg

DRUGS (3)
  1. FTY [Suspect]
     Indication: MULTIPLE SCLEROSIS
     Dosage: 1.25 MG, QD
     Route: 048
     Dates: start: 20070309, end: 20081009
  2. LORAFEN [Concomitant]
  3. CLINDAMYCIN HCL [Concomitant]

REACTIONS (2)
  - BREAST CANCER [None]
  - METASTATIC NEOPLASM [None]
